FAERS Safety Report 24637487 (Version 1)
Quarter: 2024Q4

REPORT INFORMATION
  Report Type: Spontaneous
  Country: FR (occurrence: FR)
  Receive Date: 20241119
  Receipt Date: 20241119
  Transmission Date: 20250115
  Serious: Yes (Hospitalization, Other)
  Sender: FRESENIUS KABI
  Company Number: None

PATIENT
  Age: 33 Year
  Sex: Male
  Weight: 82 kg

DRUGS (7)
  1. PROPOFOL [Suspect]
     Active Substance: PROPOFOL
     Indication: Induction of anaesthesia
     Dosage: UNKNOWN DOSAGE
     Route: 042
     Dates: start: 20240919, end: 20240919
  2. LIDOCAINE HYDROCHLORIDE [Suspect]
     Active Substance: LIDOCAINE HYDROCHLORIDE
     Indication: Induction of anaesthesia
     Dosage: 80 MG?FOA: 1FP
     Route: 042
     Dates: start: 20240919, end: 20240919
  3. ESKETAMINE HYDROCHLORIDE [Suspect]
     Active Substance: ESKETAMINE HYDROCHLORIDE
     Indication: Induction of anaesthesia
     Dosage: 20 MG
     Route: 042
     Dates: start: 20240919, end: 20240919
  4. ROCURONIUM BROMIDE [Suspect]
     Active Substance: ROCURONIUM BROMIDE
     Indication: Neuromuscular blocking therapy
     Dosage: UNKNOWN DOSAGE
     Route: 042
     Dates: start: 20240919, end: 20240919
  5. CEFAZOLIN SODIUM [Suspect]
     Active Substance: CEFAZOLIN SODIUM
     Indication: Antibiotic prophylaxis
     Dosage: 2 G
     Route: 042
     Dates: start: 20240919, end: 20240919
  6. SUFENTANIL CITRATE [Suspect]
     Active Substance: SUFENTANIL CITRATE
     Indication: Induction of anaesthesia
     Dosage: 20 MG
     Route: 042
     Dates: start: 20240919, end: 20240919
  7. DEXAMETHASONE SODIUM PHOSPHATE [Suspect]
     Active Substance: DEXAMETHASONE SODIUM PHOSPHATE
     Indication: Induction of anaesthesia
     Dosage: UNKNOWN DOSAGE
     Route: 042
     Dates: start: 20240919, end: 20240919

REACTIONS (1)
  - Anaphylactic shock [Recovered/Resolved]

NARRATIVE: CASE EVENT DATE: 20240919
